FAERS Safety Report 8010237-0 (Version None)
Quarter: 2011Q4

REPORT INFORMATION
  Report Type: 
  Country: None (occurrence: None)
  Receive Date: 20111228
  Receipt Date: 20111221
  Transmission Date: 20120403
  Serious: Yes (Other)
  Sender: FDA-Public Use
  Company Number: US-JNJFOC-20111210167

PATIENT
  Age: 39 Year
  Sex: Male
  Weight: 96.16 kg

DRUGS (2)
  1. ALLERGY MEDICATION [Concomitant]
     Indication: HYPERSENSITIVITY
     Route: 050
  2. ROLAIDS EXTRA STRENGTH UNSPECIFIED [Suspect]
     Indication: DYSPEPSIA
     Dosage: APPROXIMATELY THREE TIMES A DAY AS NEEDED, FOR 12-14 YEARS
     Route: 048

REACTIONS (6)
  - VOMITING [None]
  - TOOTH INJURY [None]
  - GINGIVAL RECESSION [None]
  - PRODUCT QUALITY ISSUE [None]
  - DENTAL CARIES [None]
  - HYPERSENSITIVITY [None]
